FAERS Safety Report 5600381-7 (Version None)
Quarter: 2007Q4

REPORT INFORMATION
  Report Type: 
  Country: None (occurrence: None)
  Receive Date: 20071226
  Receipt Date: 20070712
  Transmission Date: 20080405
  Serious: Yes (Hospitalization, Other)
  Sender: FDA-Public Use
  Company Number: 241080

PATIENT
  Age: 30 Year
  Sex: Male
  Weight: 95.2 kg

DRUGS (1)
  1. RAPTIVA [Suspect]
     Indication: PSORIASIS
     Dosage: 1/WEEK, SUBCUTANEOUS
     Route: 058
     Dates: start: 20070505

REACTIONS (1)
  - MIGRAINE [None]
